FAERS Safety Report 6384648-3 (Version None)
Quarter: 2009Q4

REPORT INFORMATION
  Report Type: 
  Country: None (occurrence: None)
  Receive Date: 20091001
  Receipt Date: 20090922
  Transmission Date: 20100525
  Serious: Yes (Other)
  Sender: FDA-Public Use
  Company Number: PHEH2009US08459

PATIENT
  Sex: Female

DRUGS (8)
  1. ENABLEX [Suspect]
     Indication: HYPERTONIC BLADDER
     Dosage: 7.5 MG, QD
     Route: 048
     Dates: start: 20071127, end: 20080425
  2. ENABLEX [Suspect]
     Indication: POLLAKIURIA
  3. DETROL [Suspect]
     Indication: HYPERTONIC BLADDER
     Dosage: UNK, UNK
     Route: 065
  4. VESICARE [Suspect]
     Indication: HYPERTONIC BLADDER
     Dosage: UNK, UNK
     Route: 065
  5. OXYTROL [Suspect]
     Indication: POLLAKIURIA
  6. OXYTROL [Suspect]
     Indication: URINARY INCONTINENCE
  7. FOSAMAX [Concomitant]
     Dosage: UNK, UNK
     Route: 065
  8. TYLENOL (CAPLET) [Concomitant]
     Dosage: UNK, UNK
     Route: 065

REACTIONS (7)
  - CYSTOCELE [None]
  - CYSTOPEXY [None]
  - DIZZINESS [None]
  - DRUG INEFFECTIVE [None]
  - DRY EYE [None]
  - DRY MOUTH [None]
  - EYE PAIN [None]
